FAERS Safety Report 10011009 (Version 2)
Quarter: 2014Q3

REPORT INFORMATION
  Report Type: Spontaneous
  Country: CA (occurrence: None)
  Receive Date: 20140312
  Receipt Date: 20140725
  Transmission Date: 20150326
  Serious: Yes (Other)
  Sender: FDA-Public Use
  Company Number: ADR-2014-00386

PATIENT

DRUGS (2)
  1. BACLOFEN INTRATHECAL [Suspect]
     Active Substance: BACLOFEN
     Dosage: ^437/DAY^
  2. FENTANYL. [Suspect]
     Active Substance: FENTANYL

REACTIONS (7)
  - Muscle spasms [None]
  - Hot flush [None]
  - Formication [None]
  - Fall [None]
  - Drug withdrawal syndrome [None]
  - Clonus [None]
  - Device failure [None]

NARRATIVE: CASE EVENT DATE: 20131226
